FAERS Safety Report 21392606 (Version 2)
Quarter: 2022Q4

REPORT INFORMATION
  Report Type: Spontaneous
  Country: FR (occurrence: FR)
  Receive Date: 20220929
  Receipt Date: 20221013
  Transmission Date: 20230113
  Serious: Yes (Other)
  Sender: FDA-Public Use
  Company Number: FR-TEVA-2022-FR-2077247

PATIENT
  Age: 61 Year
  Sex: Male

DRUGS (7)
  1. MYCOPHENOLATE MOFETIL [Interacting]
     Active Substance: MYCOPHENOLATE MOFETIL
     Indication: Immunosuppressant drug therapy
     Dosage: 500 MILLIGRAM DAILY;
     Route: 065
  2. AGALSIDASE ALFA [Interacting]
     Active Substance: AGALSIDASE ALFA
     Indication: Fabry^s disease
     Dosage: ADMINISTERED ON EVERY OTHER WEEK
     Route: 065
     Dates: start: 2010, end: 2012
  3. TACROLIMUS [Interacting]
     Active Substance: TACROLIMUS
     Indication: Immunosuppressant drug therapy
     Dosage: 1 MILLIGRAM DAILY;
     Route: 065
  4. COMIRNATY [Interacting]
     Active Substance: TOZINAMERAN
     Indication: COVID-19 immunisation
     Dosage: ADMINISTERED FIRST DOSE.
     Route: 065
     Dates: start: 20210121
  5. COMIRNATY [Interacting]
     Active Substance: TOZINAMERAN
     Dosage: ADMINISTERED SECOND DOSE
     Route: 065
     Dates: start: 20210218
  6. COMIRNATY [Interacting]
     Active Substance: TOZINAMERAN
     Dosage: ADMINISTERED THIRD DOSE
     Route: 065
     Dates: start: 20210525
  7. AGALSIDASE ALFA [Concomitant]
     Active Substance: AGALSIDASE ALFA
     Indication: Fabry^s disease
     Dosage: ADMINISTERED ON EVERY OTHER WEEK.
     Route: 065
     Dates: start: 2012

REACTIONS (3)
  - Seroconversion test negative [Unknown]
  - Drug ineffective [Unknown]
  - Drug interaction [Unknown]

NARRATIVE: CASE EVENT DATE: 20210101
